FAERS Safety Report 18981746 (Version 1)
Quarter: 2021Q1

REPORT INFORMATION
  Report Type: Report from Study
  Country: None (occurrence: US)
  Receive Date: 20210308
  Receipt Date: 20210308
  Transmission Date: 20210420
  Serious: Yes (Other)
  Sender: FDA-Public Use
  Company Number: US-BIOVITRUM-2021US0966

PATIENT
  Age: 44 Year
  Sex: Female

DRUGS (2)
  1. KINERET [Suspect]
     Active Substance: ANAKINRA
     Indication: PYREXIA
     Route: 058
     Dates: start: 20201114
  2. KINERET [Suspect]
     Active Substance: ANAKINRA
     Route: 058
     Dates: start: 20200716

REACTIONS (4)
  - Condition aggravated [Unknown]
  - Off label use [Unknown]
  - COVID-19 [Unknown]
  - Pyrexia [Unknown]

NARRATIVE: CASE EVENT DATE: 20200716
